FAERS Safety Report 7864981-6 (Version None)
Quarter: 2011Q4

REPORT INFORMATION
  Report Type: 
  Country: None (occurrence: None)
  Receive Date: 20111028
  Receipt Date: 20111021
  Transmission Date: 20120403
  Serious: Yes (Other)
  Sender: FDA-Public Use
  Company Number: US-AMGEN-USASP2011054676

PATIENT
  Age: 38 Year
  Sex: Male

DRUGS (3)
  1. SENSIPAR [Suspect]
     Indication: PRODUCT USED FOR UNKNOWN INDICATION
     Dosage: 90 MG, QD
  2. ANTIHYPERTENSIVES [Concomitant]
  3. ANTITHROMBOTIC AGENTS [Concomitant]

REACTIONS (1)
  - BLOOD GLUCOSE INCREASED [None]
